FAERS Safety Report 7363477-8 (Version None)
Quarter: 2011Q1

REPORT INFORMATION
  Report Type: 
  Country: None (occurrence: None)
  Receive Date: 20110321
  Receipt Date: 20110307
  Transmission Date: 20110831
  Serious: Yes (Hospitalization, Other)
  Sender: FDA-Public Use
  Company Number: US-RANBAXY-2011RR-43031

PATIENT
  Sex: Male

DRUGS (4)
  1. CIPROFLOXACIN [Suspect]
     Indication: PRODUCT USED FOR UNKNOWN INDICATION
     Route: 065
  2. LEVAQUIN [Suspect]
     Indication: STAPHYLOCOCCAL INFECTION
     Route: 048
  3. LEVAQUIN [Suspect]
     Indication: DIVERTICULITIS
  4. LEVAQUIN [Suspect]
     Indication: URINARY TRACT INFECTION

REACTIONS (2)
  - ADVERSE EVENT [None]
  - TENDON RUPTURE [None]
